FAERS Safety Report 4366056-X (Version None)
Quarter: 2004Q2

REPORT INFORMATION
  Report Type: 
  Country: None (occurrence: None)
  Receive Date: 20040527
  Receipt Date: 20040525
  Transmission Date: 20050107
  Serious: Yes (Life-Threatening)
  Sender: FDA-Public Use
  Company Number: 200412100FR

PATIENT
  Age: 76 Year
  Sex: Male

DRUGS (1)
  1. LOVENOX [Suspect]
     Indication: DIALYSIS
     Dosage: ROUTE: SYSTEMIC
     Route: 050
     Dates: end: 20040525

REACTIONS (3)
  - ANAPHYLACTIC SHOCK [None]
  - CARDIAC ARREST [None]
  - MALAISE [None]
